FAERS Safety Report 6266488-9 (Version None)
Quarter: 2009Q3

REPORT INFORMATION
  Report Type: 
  Country: None (occurrence: None)
  Receive Date: 20090710
  Receipt Date: 20090624
  Transmission Date: 20100115
  Serious: Yes (Disabling)
  Sender: FDA-Public Use
  Company Number: 2009AL004315

PATIENT
  Age: 71 Year
  Sex: Female

DRUGS (6)
  1. FLUOXETINE [Suspect]
     Indication: PANIC ATTACK
     Dosage: 20 MG; QD; PO
     Route: 048
     Dates: start: 20060721
  2. ATARAX [Concomitant]
  3. LIPITOR [Concomitant]
  4. LEVOTHYROXINE SODIUM [Concomitant]
  5. SERTRALINE HYDROCHLORIDE [Concomitant]
  6. CITALOPRAM HYDROBROMIDE [Concomitant]

REACTIONS (4)
  - DYSPNOEA EXERTIONAL [None]
  - GLOSSITIS [None]
  - LUNG DISORDER [None]
  - SWOLLEN TONGUE [None]
